FAERS Safety Report 5306470-9 (Version None)
Quarter: 2007Q2

REPORT INFORMATION
  Report Type: 
  Country: None (occurrence: None)
  Receive Date: 20070417
  Receipt Date: 20070129
  Transmission Date: 20071010
  Serious: Yes (Other)
  Sender: FDA-Public Use
  Company Number: 805#1#2007-00001

PATIENT
  Age: 55 Year
  Sex: Male

DRUGS (16)
  1. ALPROSTADIL [Suspect]
     Indication: ARTERIAL OCCLUSIVE DISEASE
     Dosage: 120 MCG (120 MCG 1 IN 1 DAY(S)) INTRAVENOUS DRIP
     Route: 041
     Dates: start: 20061229, end: 20070103
  2. SARPOGRELATE HYDROCHLORIDE (SARPOGRELATE HYDROCHLORIDE) [Concomitant]
  3. AMINO ACIDS (AMINO ACIDS NOS) [Concomitant]
  4. CEFOTIAM HYDROCHLORIDE [Concomitant]
  5. ALPROSTADIL [Concomitant]
  6. WARFARIN POTASSIUM (WARFARIN) [Concomitant]
  7. PRAVASTATIN [Concomitant]
  8. LEVOTHYROXINE SODIUM [Concomitant]
  9. AMINO ACIDS (AMINO ACIDS) [Concomitant]
  10. ISOSORBIDE DINITRATE [Concomitant]
  11. NICARDIPINE HYDROCHLORIDE [Concomitant]
  12. ISOSORBIDE MONONITRATE [Concomitant]
  13. IMIPRAMINE [Concomitant]
  14. CALCIUM CARBONATE PRECIPITATED (CALCIUM CARBONATE) [Concomitant]
  15. VOGLIBOSE (VOGLIBOSE) [Concomitant]
  16. LAFUTIDINE [Concomitant]

REACTIONS (5)
  - ALANINE AMINOTRANSFERASE INCREASED [None]
  - ASPARTATE AMINOTRANSFERASE INCREASED [None]
  - BLOOD ALKALINE PHOSPHATASE INCREASED [None]
  - BLOOD LACTATE DEHYDROGENASE INCREASED [None]
  - LIVER DISORDER [None]
